FAERS Safety Report 6027108-1 (Version None)
Quarter: 2009Q1

REPORT INFORMATION
  Report Type: 
  Country: None (occurrence: None)
  Receive Date: 20090102
  Receipt Date: 20090102
  Transmission Date: 20090719
  Serious: No
  Sender: FDA-Public Use
  Company Number: None

PATIENT
  Age: 50 Year
  Sex: Female
  Weight: 79.3795 kg

DRUGS (1)
  1. BONIVA [Suspect]
     Indication: OSTEOPENIA
     Dosage: 150 MG ONCE A MONTH PO
     Route: 048
     Dates: start: 20081110, end: 20081210

REACTIONS (2)
  - INFLUENZA LIKE ILLNESS [None]
  - PAIN [None]
